FAERS Safety Report 7186207-1 (Version None)
Quarter: 2010Q4

REPORT INFORMATION
  Report Type: 
  Country: None (occurrence: None)
  Receive Date: 20101222
  Receipt Date: 20100616
  Transmission Date: 20110411
  Serious: No
  Sender: FDA-Public Use
  Company Number: US-AMGEN-KDL418832

PATIENT

DRUGS (2)
  1. ENBREL [Suspect]
     Indication: RHEUMATOID ARTHRITIS
     Dosage: 50 MG, QWK
     Route: 058
  2. ADALIMUMAB [Suspect]

REACTIONS (8)
  - BACTERIAL INFECTION [None]
  - BLISTER [None]
  - DRY SKIN [None]
  - ECZEMA [None]
  - INJECTION SITE REACTION [None]
  - MUSCLE SPASMS [None]
  - PRURITUS [None]
  - SCAB [None]
